FAERS Safety Report 16731699 (Version 2)
Quarter: 2019Q3

REPORT INFORMATION
  Report Type: Spontaneous
  Country: DE (occurrence: DE)
  Receive Date: 20190822
  Receipt Date: 20190910
  Transmission Date: 20191005
  Serious: Yes (Other)
  Sender: FDA-Public Use
  Company Number: DE-MYLANLABS-2019M1078149

PATIENT
  Sex: Male

DRUGS (9)
  1. MORPHINE [Concomitant]
     Active Substance: MORPHINE
     Indication: PRODUCT USED FOR UNKNOWN INDICATION
     Dosage: UNK UNK, UNKNOWN FREQ.
     Route: 065
  2. XTANDI [Suspect]
     Active Substance: ENZALUTAMIDE
     Indication: PRODUCT USED FOR UNKNOWN INDICATION
     Dosage: 40 MG, UNKNOWN FREQ.
     Route: 065
  3. BICALUTAMID [Concomitant]
     Active Substance: BICALUTAMIDE
     Indication: PRODUCT USED FOR UNKNOWN INDICATION
     Dosage: UNK UNK, UNKNOWN FREQ.
     Route: 065
  4. NOVALGIN (METAMIZOLE SODIUM) [Concomitant]
     Active Substance: METAMIZOLE SODIUM
     Indication: PRODUCT USED FOR UNKNOWN INDICATION
     Dosage: UNK UNK, UNKNOWN FREQ.
     Route: 065
  5. XTANDI [Suspect]
     Active Substance: ENZALUTAMIDE
     Indication: PRODUCT USED FOR UNKNOWN INDICATION
     Dosage: 40 MG, UNKNOWN FREQ.
     Route: 065
  6. BICALUTAMID [Concomitant]
     Active Substance: BICALUTAMIDE
     Dosage: 50 1X1, UNKNOWN FREQ.
     Dates: start: 201712
  7. TRENANTONE [Concomitant]
     Active Substance: LEUPROLIDE ACETATE
     Indication: PRODUCT USED FOR UNKNOWN INDICATION
     Dosage: UNK UNK, Q3MONTHS
     Route: 065
  8. METHOTREXATE. [Suspect]
     Active Substance: METHOTREXATE
     Indication: RHEUMATIC DISORDER
     Dosage: UNK UNK, UNKNOWN FREQ.
     Route: 065
  9. OXYCODON [Concomitant]
     Active Substance: OXYCODONE
     Indication: PRODUCT USED FOR UNKNOWN INDICATION
     Dosage: 30 MILLIGRAM, BID
     Route: 065

REACTIONS (16)
  - Blood pressure abnormal [Unknown]
  - Hot flush [Unknown]
  - Pain [Unknown]
  - Erythema [Recovering/Resolving]
  - Vomiting [Unknown]
  - Nausea [Unknown]
  - Generalised erythema [Recovering/Resolving]
  - Decreased immune responsiveness [Unknown]
  - Hyperhidrosis [Unknown]
  - Suffocation feeling [Unknown]
  - Pyrexia [Unknown]
  - Rash [Unknown]
  - Weight decreased [Unknown]
  - Fear of death [Unknown]
  - Product use complaint [Unknown]
  - Oesophageal disorder [Unknown]
